FAERS Safety Report 8020882-4 (Version None)
Quarter: 2012Q1

REPORT INFORMATION
  Report Type: 
  Country: None (occurrence: None)
  Receive Date: 20120104
  Receipt Date: 20111228
  Transmission Date: 20120608
  Serious: Yes (Other)
  Sender: FDA-Public Use
  Company Number: FR-ACCORD-011879

PATIENT
  Age: 39 Year
  Sex: Female

DRUGS (5)
  1. LEUCOVORINE [Concomitant]
     Dates: end: 20090301
  2. FLUOROURACIL [Suspect]
     Dates: end: 20090301
  3. IRINOTECAN HCL [Suspect]
  4. OXALIPLATIN [Suspect]
     Dates: end: 20090301
  5. BEVACIZUMAB [Suspect]
     Dosage: PATIENT HAD RECEIVED TOTAL 7500 MG
     Dates: end: 20090301

REACTIONS (2)
  - HYPERTROPHIC OSTEOARTHROPATHY [None]
  - CLUBBING [None]
